FAERS Safety Report 24179491 (Version 2)
Quarter: 2024Q3

REPORT INFORMATION
  Report Type: Spontaneous
  Country: US (occurrence: US)
  Receive Date: 20240806
  Receipt Date: 20240814
  Transmission Date: 20241016
  Serious: No
  Sender: PFIZER
  Company Number: US-PFIZER INC-202400228612

PATIENT
  Age: 45 Year
  Sex: Male
  Weight: 86.5 kg

DRUGS (11)
  1. HEPARIN SODIUM [Suspect]
     Active Substance: HEPARIN SODIUM
     Indication: Acute myocardial infarction
     Dosage: DOSE: 40 UNITS/KG BOLUSES; CONTINUOUS INFUSION AT 12 UNITS/KG/HR TITRATED TO 18 UNITS/KG/HR
     Route: 042
     Dates: start: 20240608, end: 20240608
  2. HEPARIN SODIUM [Suspect]
     Active Substance: HEPARIN SODIUM
     Dosage: DOSE: 40 UNITS/KG BOLUSES; CONTINUOUS INFUSION AT 12 UNITS/KG/HR TITRATED TO 18 UNITS/KG/HR
     Route: 042
     Dates: start: 20240609, end: 20240609
  3. HEPARIN SODIUM [Suspect]
     Active Substance: HEPARIN SODIUM
     Dosage: DOSE: 40 UNITS/KG BOLUSES; CONTINUOUS INFUSION AT 12 UNITS/KG/HR TITRATED TO 18 UNITS/KG/HR
     Route: 042
     Dates: start: 20240610, end: 20240610
  4. HEPARIN [Suspect]
     Active Substance: HEPARIN SODIUM
     Dosage: UNK
  5. ATORVASTATIN [Concomitant]
     Active Substance: ATORVASTATIN
     Dosage: 80 MG PO (PER ORAL) QD (EVERYDAY)
     Route: 048
  6. CLOPIDOGREL [Concomitant]
     Active Substance: CLOPIDOGREL BISULFATE
     Dosage: 75 MG PO(PER ORAL) QD (EVERYDAY)
     Route: 048
  7. LISINOPRIL [Concomitant]
     Active Substance: LISINOPRIL
     Dosage: 5 MG PO(PER ORAL) QD (EVERYDAY)
     Route: 048
  8. METOPROLOL TARTRATE [Concomitant]
     Active Substance: METOPROLOL TARTRATE
     Dosage: 25 MG PO (PER ORAL) BID (TWICE A DAY)
     Route: 048
  9. NICOTINE [Concomitant]
     Active Substance: NICOTINE
     Dosage: 21 MG DAILY TOPICAL PATCH
     Route: 061
  10. ASPIRIN [Concomitant]
     Active Substance: ASPIRIN
     Dosage: ASPIRIN 81 MG PO(PER ORAL) QD (EVERYDAY)
     Route: 048
  11. INSULIN LISPRO [Concomitant]
     Active Substance: INSULIN LISPRO
     Dosage: INSULIN LISPRO SLIDING SCALE

REACTIONS (2)
  - Drug ineffective for unapproved indication [Unknown]
  - Off label use [Unknown]

NARRATIVE: CASE EVENT DATE: 20240608
